FAERS Safety Report 9413842 (Version 2)
Quarter: 2013Q3

REPORT INFORMATION
  Report Type: Report from Study
  Country: US (occurrence: US)
  Receive Date: 20130723
  Receipt Date: 20130829
  Transmission Date: 20140515
  Serious: Yes (Hospitalization)
  Sender: FDA-Public Use
  Company Number: US-BIOGENIDEC-2013BI064045

PATIENT
  Age: 54 Year
  Sex: Male

DRUGS (17)
  1. TYSABRI [Suspect]
     Indication: MULTIPLE SCLEROSIS
     Route: 042
     Dates: start: 20080115, end: 20130425
  2. BACLOFEN [Concomitant]
     Route: 048
  3. BUPROPION HCL ER [Concomitant]
     Route: 048
  4. CYCLOBENZAPRINE HCL [Concomitant]
     Route: 048
  5. DIAZEPAM [Concomitant]
     Route: 048
  6. OXYCODONE [Concomitant]
     Route: 048
  7. ACETAMINOPHEN [Concomitant]
     Route: 048
  8. ERGOCALCIFEROL [Concomitant]
     Route: 048
  9. GABAPENTIN [Concomitant]
     Route: 048
  10. GEMFIBROZIL [Concomitant]
     Route: 048
  11. MODAFINIL [Concomitant]
     Route: 048
  12. MULTIVITAMINS [Concomitant]
     Route: 048
  13. OMEPRAZOLE [Concomitant]
     Route: 048
  14. OMEGA 3 [Concomitant]
     Route: 048
  15. PANTOPRAZOLE [Concomitant]
     Route: 048
  16. QUININE SULFATE [Concomitant]
     Route: 048
  17. VITAMIN B 12 [Concomitant]
     Route: 048

REACTIONS (2)
  - Parasite blood test positive [Recovered/Resolved]
  - Transaminases increased [Recovered/Resolved]
